FAERS Safety Report 4757283-8 (Version None)
Quarter: 2005Q3

REPORT INFORMATION
  Report Type: 
  Country: None (occurrence: None)
  Receive Date: 20050829
  Receipt Date: 20050818
  Transmission Date: 20060218
  Serious: Yes (Other)
  Sender: FDA-Public Use
  Company Number: 2005118260

PATIENT
  Age: 40 Year
  Sex: Female
  Weight: 40 kg

DRUGS (1)
  1. SOLU-MEDROL [Suspect]
     Indication: SYSTEMIC LUPUS ERYTHEMATOSUS
     Dosage: 1000 MG (1000 MG, 1 IN 1 D), INTRAVENOUS
     Route: 042
     Dates: start: 20050508

REACTIONS (6)
  - FEAR [None]
  - INSOMNIA [None]
  - IRRITABILITY [None]
  - PSYCHOTIC DISORDER [None]
  - SPEECH DISORDER [None]
  - TREMOR [None]
